FAERS Safety Report 7217246-X (Version None)
Quarter: 2011Q1

REPORT INFORMATION
  Report Type: 
  Country: None (occurrence: None)
  Receive Date: 20110110
  Receipt Date: 20101229
  Transmission Date: 20110831
  Serious: Yes (Death, Hospitalization, Other)
  Sender: FDA-Public Use
  Company Number: ES-SANOFI-AVENTIS-2011SA000762

PATIENT
  Age: 74 Year
  Sex: Male

DRUGS (12)
  1. FERROUS SULFATE [Concomitant]
     Dosage: DOSE:1 UNIT(S)
  2. FUROSEMIDE [Concomitant]
  3. SINTROM [Concomitant]
     Dosage: 2 MG (13-DEC-2010) TUESDAY CONTROL
  4. MULTAQ [Suspect]
     Indication: CARDIAC VENTRICULAR DISORDER
     Route: 048
     Dates: start: 20101119, end: 20101219
  5. KEPPRA [Concomitant]
  6. POTASION [Concomitant]
  7. ARANESP [Concomitant]
     Dosage: 1 INJECTION/ 15 DAYS (LAST  INTAKE ON 12-DEC-2010)
  8. OMEPRAZOLE [Concomitant]
  9. NATECAL D [Concomitant]
     Dosage: DOSE:1 UNIT(S)
  10. MASDIL [Concomitant]
     Dosage: 1 DOSAGE/ 8H DOSE:1 UNIT(S)
  11. SERETIDE [Concomitant]
     Dosage: 1 INHALATION/ 12H DOSE:1 UNIT(S)
     Route: 055
  12. PREDNISONE [Concomitant]

REACTIONS (7)
  - DYSPNOEA [None]
  - OEDEMA PERIPHERAL [None]
  - MULTI-ORGAN FAILURE [None]
  - ANURIA [None]
  - OFF LABEL USE [None]
  - HYPOTENSION [None]
  - PALPITATIONS [None]
